FAERS Safety Report 10694573 (Version 36)
Quarter: 2019Q4

REPORT INFORMATION
  Report Type: Report from Study
  Country: CA (occurrence: CA)
  Receive Date: 20150107
  Receipt Date: 20191230
  Transmission Date: 20200122
  Serious: Yes (Hospitalization, Other)
  Sender: FDA-Public Use
  Company Number: CA-ROCHE-1387659

PATIENT
  Age: 53 Year
  Sex: Female
  Weight: 48.81 kg

DRUGS (35)
  1. RITUXAN [Suspect]
     Active Substance: RITUXIMAB
     Route: 042
     Dates: start: 20160210
  2. PREDNISONE. [Suspect]
     Active Substance: PREDNISONE
     Indication: PRODUCT USED FOR UNKNOWN INDICATION
     Route: 065
     Dates: end: 2015
  3. CYCLOBENZAPRINE. [Concomitant]
     Active Substance: CYCLOBENZAPRINE
  4. ACETAMINOPHEN. [Concomitant]
     Active Substance: ACETAMINOPHEN
     Route: 048
     Dates: start: 20170822
  5. HYDROMORPHONE [Concomitant]
     Active Substance: HYDROMORPHONE
  6. VENLAFAXINE [Concomitant]
     Active Substance: VENLAFAXINE HYDROCHLORIDE
  7. TYLENOL WITH CODEINE [Concomitant]
     Active Substance: ACETAMINOPHEN\CODEINE PHOSPHATE
     Dosage: AS REQUIRED
     Route: 065
  8. TOPIRAMATE. [Concomitant]
     Active Substance: TOPIRAMATE
     Indication: MIGRAINE
     Route: 065
  9. ESOMEPRAZOLE. [Concomitant]
     Active Substance: ESOMEPRAZOLE MAGNESIUM
  10. CLONAZEPAM. [Concomitant]
     Active Substance: CLONAZEPAM
  11. TYLENOL [Concomitant]
     Active Substance: ACETAMINOPHEN
     Indication: PREMEDICATION
     Route: 048
     Dates: start: 20140417
  12. BUPROPION. [Concomitant]
     Active Substance: BUPROPION
  13. DIPHENHYDRAMINE HYDROCHLORIDE. [Concomitant]
     Active Substance: DIPHENHYDRAMINE HYDROCHLORIDE
     Route: 048
     Dates: start: 20170822
  14. METHYLPREDNISOLONE. [Concomitant]
     Active Substance: METHYLPREDNISOLONE
     Route: 042
     Dates: start: 20170822
  15. ATROVENT [Concomitant]
     Active Substance: IPRATROPIUM BROMIDE
  16. MIRTAZAPINE. [Concomitant]
     Active Substance: MIRTAZAPINE
  17. LORAZEPAM. [Concomitant]
     Active Substance: LORAZEPAM
  18. RITUXAN [Suspect]
     Active Substance: RITUXIMAB
     Route: 042
     Dates: start: 20170822
  19. DIPHENHYDRAMINE HYDROCHLORIDE. [Concomitant]
     Active Substance: DIPHENHYDRAMINE HYDROCHLORIDE
     Indication: PREMEDICATION
     Route: 048
     Dates: start: 20140417
  20. RAMIPRIL. [Concomitant]
     Active Substance: RAMIPRIL
     Route: 065
  21. NAPROXEN. [Concomitant]
     Active Substance: NAPROXEN
  22. CHAMPIX [Concomitant]
     Active Substance: VARENICLINE TARTRATE
  23. SOLU-MEDROL [Concomitant]
     Active Substance: METHYLPREDNISOLONE SODIUM SUCCINATE
     Indication: PREMEDICATION
     Route: 042
     Dates: start: 20140417
  24. ACETAMINOPHEN. [Concomitant]
     Active Substance: ACETAMINOPHEN
     Indication: PREMEDICATION
     Route: 048
     Dates: start: 20140417
  25. ZOPICLONE [Concomitant]
     Active Substance: ZOPICLONE
  26. RITUXAN [Suspect]
     Active Substance: RITUXIMAB
     Indication: RHEUMATOID ARTHRITIS
     Dosage: LAST RITUXIMAB INFUSION: 01/MAY/2014?MOST RECENT DOSE: 20/SEP/2017
     Route: 042
     Dates: start: 20140417
  27. METHYLPREDNISOLONE. [Concomitant]
     Active Substance: METHYLPREDNISOLONE
     Indication: PREMEDICATION
     Route: 048
     Dates: start: 20140417
  28. GABAPENTIN. [Concomitant]
     Active Substance: GABAPENTIN
  29. SALBUTAMOL [Concomitant]
     Active Substance: ALBUTEROL
  30. BENADRYL [Concomitant]
     Active Substance: DIPHENHYDRAMINE HYDROCHLORIDE
     Indication: PREMEDICATION
     Route: 048
     Dates: start: 20140417
  31. RITUXAN [Suspect]
     Active Substance: RITUXIMAB
     Route: 042
     Dates: start: 20170920
  32. METHOTREXATE. [Concomitant]
     Active Substance: METHOTREXATE
  33. PANTOLOC [PANTOPRAZOLE] [Concomitant]
     Active Substance: PANTOPRAZOLE SODIUM
  34. QUETIAPINE. [Concomitant]
     Active Substance: QUETIAPINE
  35. SPIRIVA [Concomitant]
     Active Substance: TIOTROPIUM BROMIDE MONOHYDRATE

REACTIONS (52)
  - Pneumonia [Not Recovered/Not Resolved]
  - Pain in extremity [Unknown]
  - Infusion related reaction [Recovered/Resolved]
  - Peripheral swelling [Unknown]
  - Blood pressure increased [Unknown]
  - Wound [Not Recovered/Not Resolved]
  - Chronic obstructive pulmonary disease [Unknown]
  - Sleep apnoea syndrome [Not Recovered/Not Resolved]
  - Pruritus [Not Recovered/Not Resolved]
  - Scratch [Not Recovered/Not Resolved]
  - Nausea [Not Recovered/Not Resolved]
  - Anxiety [Unknown]
  - Weight increased [Unknown]
  - Joint swelling [Unknown]
  - Oral herpes [Not Recovered/Not Resolved]
  - Cough [Unknown]
  - Blood pressure diastolic abnormal [Unknown]
  - Lower respiratory tract infection [Recovered/Resolved]
  - Emphysema [Not Recovered/Not Resolved]
  - Arthralgia [Not Recovered/Not Resolved]
  - Oral herpes [Not Recovered/Not Resolved]
  - Hot flush [Recovered/Resolved]
  - Hypotension [Unknown]
  - Pyrexia [Recovered/Resolved]
  - Rheumatoid arthritis [Not Recovered/Not Resolved]
  - Hypoaesthesia [Unknown]
  - Lip blister [Recovered/Resolved]
  - Body temperature decreased [Unknown]
  - Oxygen saturation decreased [Unknown]
  - Chemical burn of skin [Recovered/Resolved]
  - Herpes zoster [Unknown]
  - Migraine [Unknown]
  - Influenza like illness [Recovering/Resolving]
  - Arthritis [Not Recovered/Not Resolved]
  - Weight decreased [Unknown]
  - Cough [Not Recovered/Not Resolved]
  - Aphthous ulcer [Unknown]
  - Pulmonary congestion [Unknown]
  - Malaise [Unknown]
  - Rash [Not Recovered/Not Resolved]
  - Dysphonia [Unknown]
  - Poor venous access [Unknown]
  - Sinus disorder [Unknown]
  - Arthropathy [Unknown]
  - Throat irritation [Not Recovered/Not Resolved]
  - Blood pressure systolic increased [Unknown]
  - Pneumonia [Unknown]
  - Pain in extremity [Not Recovered/Not Resolved]
  - Musculoskeletal stiffness [Not Recovered/Not Resolved]
  - Inflammation [Unknown]
  - Dry mouth [Unknown]
  - Poor quality sleep [Unknown]

NARRATIVE: CASE EVENT DATE: 20140417
